FAERS Safety Report 13469342 (Version 2)
Quarter: 2017Q2

REPORT INFORMATION
  Report Type: Report from Study
  Country: US (occurrence: US)
  Receive Date: 20170421
  Receipt Date: 20170427
  Transmission Date: 20170830
  Serious: Yes (Hospitalization)
  Sender: FDA-Public Use
  Company Number: PHHY2017US059238

PATIENT
  Age: 8 Year
  Sex: Female
  Weight: 86.7 kg

DRUGS (23)
  1. VOLTAREN [Suspect]
     Active Substance: DICLOFENAC SODIUM
     Indication: JUVENILE IDIOPATHIC ARTHRITIS
     Dosage: 100 MG, UNK
     Route: 065
     Dates: start: 20151209, end: 20160113
  2. RELAFEN [Suspect]
     Active Substance: NABUMETONE
     Indication: JUVENILE IDIOPATHIC ARTHRITIS
     Dosage: 500 MG, UNK
     Route: 065
     Dates: start: 20151028, end: 20151118
  3. NAPROSYN [Suspect]
     Active Substance: NAPROXEN
     Dosage: 500 MG, UNK
     Route: 065
     Dates: start: 20160113, end: 20160413
  4. SANDIMMUN NEORAL [Suspect]
     Active Substance: CYCLOSPORINE
     Dosage: 100 MG, UNK
     Route: 065
     Dates: start: 20160826, end: 20160906
  5. NAPROSYN [Suspect]
     Active Substance: NAPROXEN
     Indication: JUVENILE IDIOPATHIC ARTHRITIS
     Dosage: 500 MG, UNK
     Route: 065
     Dates: start: 20150901, end: 20151028
  6. LORATADINE. [Concomitant]
     Active Substance: LORATADINE
     Indication: SEASONAL ALLERGY
     Dosage: 10 MG, UNK
     Route: 065
     Dates: start: 20161018
  7. OMEPRAZOLE. [Concomitant]
     Active Substance: OMEPRAZOLE
     Indication: PROPHYLAXIS
     Dosage: 40 MG, UNK
     Route: 065
     Dates: start: 201603
  8. ACZ885 [Suspect]
     Active Substance: CANAKINUMAB
     Indication: JUVENILE IDIOPATHIC ARTHRITIS
     Dosage: 180 MG, UNK
     Route: 065
     Dates: start: 20160325, end: 20160413
  9. SANDIMMUN NEORAL [Suspect]
     Active Substance: CYCLOSPORINE
     Dosage: 150 MG, UNK
     Route: 065
     Dates: start: 20160211, end: 20160509
  10. SANDIMMUN NEORAL [Suspect]
     Active Substance: CYCLOSPORINE
     Dosage: 100 MG, UNK
     Route: 065
     Dates: start: 20160309, end: 20160819
  11. ACTEMRA [Suspect]
     Active Substance: TOCILIZUMAB
     Dosage: 460 MG, UNK
     Route: 065
     Dates: start: 20160823, end: 20170419
  12. ENALAPRIL [Concomitant]
     Active Substance: ENALAPRIL
     Indication: HYPERTENSION
     Dosage: 5 MG, UNK
     Route: 065
     Dates: start: 20160803
  13. SANDIMMUN NEORAL [Suspect]
     Active Substance: CYCLOSPORINE
     Indication: JUVENILE IDIOPATHIC ARTHRITIS
     Dosage: 100 MG, UNK
     Route: 065
     Dates: start: 20160113, end: 20160211
  14. NAPROSYN [Suspect]
     Active Substance: NAPROXEN
     Dosage: 500 MG, UNK
     Route: 065
     Dates: start: 20160420
  15. ACTEMRA [Suspect]
     Active Substance: TOCILIZUMAB
     Indication: JUVENILE IDIOPATHIC ARTHRITIS
     Dosage: 500 MG, UNK
     Route: 065
     Dates: start: 20160621, end: 20160719
  16. ACTEMRA [Suspect]
     Active Substance: TOCILIZUMAB
     Dosage: 460 MG, UNK
     Route: 065
     Dates: start: 20170419
  17. FERROUS SULFATE. [Concomitant]
     Active Substance: FERROUS SULFATE
     Indication: ANAEMIA
     Dosage: 325 MG, UNK
     Route: 065
     Dates: start: 20160803
  18. PREDNISONE. [Concomitant]
     Active Substance: PREDNISONE
     Indication: JUVENILE IDIOPATHIC ARTHRITIS
     Dosage: 5 MG, UNK
     Route: 065
     Dates: start: 20170208
  19. HUMIRA [Suspect]
     Active Substance: ADALIMUMAB
     Indication: JUVENILE IDIOPATHIC ARTHRITIS
     Dosage: 40 MG, UNK
     Route: 065
     Dates: start: 20160106, end: 20160113
  20. KINERET [Suspect]
     Active Substance: ANAKINRA
     Indication: JUVENILE IDIOPATHIC ARTHRITIS
     Dosage: 100 MG, UNK
     Route: 065
     Dates: start: 20160113, end: 20160211
  21. RELAFEN [Suspect]
     Active Substance: NABUMETONE
     Dosage: 750 MG, UNK
     Route: 065
     Dates: start: 20151118, end: 20151209
  22. ACZ885 [Suspect]
     Active Substance: CANAKINUMAB
     Dosage: 180 MG, UNK
     Route: 065
     Dates: start: 20160428, end: 20160608
  23. KINERET [Suspect]
     Active Substance: ANAKINRA
     Dosage: 100 MG, UNK
     Route: 065
     Dates: start: 20160211, end: 20160224

REACTIONS (12)
  - Dizziness [Unknown]
  - Dysuria [Unknown]
  - Flank pain [Unknown]
  - Oropharyngeal pain [Unknown]
  - Pyrexia [Unknown]
  - Chills [Unknown]
  - Transaminases increased [Unknown]
  - Escherichia urinary tract infection [Recovered/Resolved]
  - Disorientation [Unknown]
  - Hepatic steatosis [Unknown]
  - Infection [Recovered/Resolved]
  - Cough [Unknown]

NARRATIVE: CASE EVENT DATE: 20170403
